FAERS Safety Report 12689613 (Version 4)
Quarter: 2017Q1

REPORT INFORMATION
  Report Type: Report from Study
  Country: JP (occurrence: JP)
  Receive Date: 20160826
  Receipt Date: 20170301
  Transmission Date: 20170428
  Serious: Yes (Life-Threatening, Hospitalization, Other)
  Sender: FDA-Public Use
  Company Number: JP-VIIV HEALTHCARE LIMITED-JP2016JPN122087

PATIENT
  Age: 48 Year
  Sex: Male

DRUGS (40)
  1. RETROVIR [Suspect]
     Active Substance: ZIDOVUDINE
     Indication: HIV INFECTION
     Dosage: 100 MG, QID
     Route: 048
     Dates: start: 19960926, end: 19991013
  2. DOLUTEGRAVIR [Suspect]
     Active Substance: DOLUTEGRAVIR
     Indication: HIV INFECTION
     Dosage: 50 MG, UNK
     Route: 048
     Dates: start: 20150514
  3. ISENTRESS [Suspect]
     Active Substance: RALTEGRAVIR POTASSIUM
     Dosage: 800 UNK, UNK
     Route: 048
     Dates: start: 20150303, end: 20150513
  4. TRUVADA [Suspect]
     Active Substance: EMTRICITABINE\TENOFOVIR DISOPROXIL FUMARATE
     Indication: HIV INFECTION
     Dosage: 1 DF, UNK
     Route: 048
     Dates: start: 20060329, end: 20150303
  5. EPIVIR [Concomitant]
     Active Substance: LAMIVUDINE
     Dosage: 150 MG, QD
     Route: 048
     Dates: start: 20150318, end: 20150326
  6. EPIVIR [Concomitant]
     Active Substance: LAMIVUDINE
     Dosage: 300 MG, QD
     Route: 048
     Dates: start: 20150327, end: 20150407
  7. ZIAGEN [Concomitant]
     Active Substance: ABACAVIR SULFATE
     Indication: HIV INFECTION
     Dosage: 300 MG, BID
     Route: 048
     Dates: start: 20150303, end: 20150407
  8. LENDORMIN D [Concomitant]
     Active Substance: BROTIZOLAM
     Indication: INSOMNIA
  9. DESYREL [Concomitant]
     Active Substance: TRAZODONE HYDROCHLORIDE
     Indication: DEPRESSION
     Dosage: 25 MG, BID
     Dates: start: 20150527, end: 20150721
  10. ROZEREM [Concomitant]
     Active Substance: RAMELTEON
     Indication: DEPRESSION
     Dosage: 8 MG, QD
     Dates: start: 20150722
  11. BELSOMRA [Concomitant]
     Active Substance: SUVOREXANT
     Indication: DEPRESSION
     Dosage: 15 MG, QD
     Dates: start: 20160323
  12. VIREAD [Concomitant]
     Active Substance: TENOFOVIR DISOPROXIL FUMARATE
     Indication: HIV INFECTION
     Dosage: 300 MG, UNK
     Route: 048
     Dates: start: 20050815, end: 20060329
  13. BENZALIN (JAPAN) [Concomitant]
     Active Substance: NITRAZEPAM
     Indication: DEPRESSION
     Dosage: 10 MG, QD
  14. DESYREL [Concomitant]
     Active Substance: TRAZODONE HYDROCHLORIDE
     Indication: INSOMNIA
  15. ROZEREM [Concomitant]
     Active Substance: RAMELTEON
     Indication: INSOMNIA
  16. RETROVIR [Suspect]
     Active Substance: ZIDOVUDINE
     Dosage: 400 MG, UNK
     Route: 048
     Dates: start: 20060329, end: 20150301
  17. JZOLOFT [Concomitant]
     Active Substance: SERTRALINE HYDROCHLORIDE
     Indication: DEPRESSION
     Dosage: 100 MG, QD
  18. LUNESTA [Concomitant]
     Active Substance: ESZOPICLONE
     Indication: INSOMNIA
  19. AMOBAN [Concomitant]
     Active Substance: ZOPICLONE
     Indication: DEPRESSION
     Dosage: 10 MG, QD
     Dates: start: 20150414, end: 20160322
  20. BELSOMRA [Concomitant]
     Active Substance: SUVOREXANT
     Indication: INSOMNIA
  21. LENDORMIN D [Concomitant]
     Active Substance: BROTIZOLAM
     Indication: DEPRESSION
     Dosage: 0.25 MG, QD
     Dates: end: 20150429
  22. EPIVIR [Concomitant]
     Active Substance: LAMIVUDINE
     Dosage: 50 MG, QD
     Route: 048
     Dates: start: 20150303, end: 20150317
  23. REFLEX [Concomitant]
     Active Substance: MIRTAZAPINE
     Indication: INSOMNIA
  24. CONSTAN [Concomitant]
     Active Substance: ALPRAZOLAM
     Indication: INSOMNIA
  25. AMOBAN [Concomitant]
     Active Substance: ZOPICLONE
     Indication: INSOMNIA
  26. MYSLEE [Concomitant]
     Active Substance: ZOLPIDEM TARTRATE
     Indication: DEPRESSION
     Dosage: 5 MG, QD
     Dates: start: 20150430, end: 20151124
  27. ROHYPNOL [Concomitant]
     Active Substance: FLUNITRAZEPAM
     Indication: INSOMNIA
  28. RETROVIR [Suspect]
     Active Substance: ZIDOVUDINE
     Dosage: 400 MG, UNK
     Route: 048
     Dates: start: 20150303, end: 20150428
  29. VIREAD [Concomitant]
     Active Substance: TENOFOVIR DISOPROXIL FUMARATE
     Dosage: 300 MG, UNK
     Route: 048
     Dates: start: 20150422
  30. JZOLOFT [Concomitant]
     Active Substance: SERTRALINE HYDROCHLORIDE
     Indication: INSOMNIA
  31. LUNESTA [Concomitant]
     Active Substance: ESZOPICLONE
     Indication: DEPRESSION
     Dosage: 3 MG, QD
     Dates: end: 20150413
  32. BENZALIN (JAPAN) [Concomitant]
     Active Substance: NITRAZEPAM
     Indication: INSOMNIA
  33. ROHYPNOL [Concomitant]
     Active Substance: FLUNITRAZEPAM
     Indication: DEPRESSION
     Dosage: 2 MG, QD
     Dates: start: 20151125
  34. EPIVIR [Concomitant]
     Active Substance: LAMIVUDINE
     Indication: HIV INFECTION
     Dosage: 150 MG, BID
     Route: 048
     Dates: start: 19960926, end: 19991010
  35. MYSLEE [Concomitant]
     Active Substance: ZOLPIDEM TARTRATE
     Indication: INSOMNIA
  36. ISENTRESS [Suspect]
     Active Substance: RALTEGRAVIR POTASSIUM
     Indication: HIV INFECTION
     Dosage: 800 MG, UNK
     Route: 048
     Dates: start: 20120523, end: 20150301
  37. EPZICOM [Concomitant]
     Active Substance: ABACAVIR SULFATE\LAMIVUDINE
     Indication: HIV INFECTION
     Dosage: 1 DF, QD
     Route: 048
     Dates: start: 20150408, end: 20150421
  38. EDURANT [Concomitant]
     Active Substance: RILPIVIRINE HYDROCHLORIDE
     Indication: HIV INFECTION
     Dosage: 25 MG, UNK
     Route: 048
     Dates: start: 20150429
  39. REFLEX [Concomitant]
     Active Substance: MIRTAZAPINE
     Indication: DEPRESSION
     Dosage: 30 MG, QD
  40. CONSTAN [Concomitant]
     Active Substance: ALPRAZOLAM
     Indication: DEPRESSION
     Dosage: 0.4 MG, QD
     Dates: end: 20150721

REACTIONS (4)
  - Acute kidney injury [Recovered/Resolved]
  - Rhabdomyolysis [Recovered/Resolved with Sequelae]
  - Neuropathy peripheral [Not Recovered/Not Resolved]
  - Hypertriglyceridaemia [Not Recovered/Not Resolved]

NARRATIVE: CASE EVENT DATE: 20110824
